FAERS Safety Report 21560619 (Version 1)
Quarter: 2022Q4

REPORT INFORMATION
  Report Type: Spontaneous
  Country: US (occurrence: US)
  Receive Date: 20221107
  Receipt Date: 20221107
  Transmission Date: 20230113
  Serious: No
  Sender: FDA-Public Use
  Company Number: US-ABBVIE-4157546

PATIENT

DRUGS (1)
  1. RINVOQ [Suspect]
     Active Substance: UPADACITINIB
     Indication: Product used for unknown indication
     Route: 048
     Dates: end: 20220705

REACTIONS (5)
  - Injection site irritation [Unknown]
  - Injection site pruritus [Not Recovered/Not Resolved]
  - Pruritus [Unknown]
  - Drug ineffective [Unknown]
  - Injection site erythema [Not Recovered/Not Resolved]
